FAERS Safety Report 24105981 (Version 1)
Quarter: 2024Q3

REPORT INFORMATION
  Report Type: Spontaneous
  Country: GB (occurrence: None)
  Receive Date: 20240717
  Receipt Date: 20240717
  Transmission Date: 20241016
  Serious: Yes (Hospitalization, Disabling, Other)
  Sender: ASTRAZENECA
  Company Number: 2024A155899

PATIENT
  Sex: Male

DRUGS (9)
  1. DAPAGLIFLOZIN [Suspect]
     Active Substance: DAPAGLIFLOZIN
  2. BISOPROLOL [Concomitant]
     Active Substance: BISOPROLOL\BISOPROLOL FUMARATE
  3. LEVODOPA [Concomitant]
     Active Substance: LEVODOPA
  4. ASPIRIN [Concomitant]
     Active Substance: ASPIRIN
  5. SIMVASTATIN [Concomitant]
     Active Substance: SIMVASTATIN
  6. METFORMIN [Concomitant]
     Active Substance: METFORMIN HYDROCHLORIDE
  7. CLONAZEPAM [Concomitant]
     Active Substance: CLONAZEPAM
  8. PANTOPRAZOLE [Concomitant]
     Active Substance: PANTOPRAZOLE
  9. DIMETICONE/DOMPERIDONE [Concomitant]

REACTIONS (4)
  - Back pain [Not Recovered/Not Resolved]
  - Abdominal pain [Not Recovered/Not Resolved]
  - Confusional state [Not Recovered/Not Resolved]
  - Gait inability [Not Recovered/Not Resolved]
